FAERS Safety Report 9438034 (Version 1)
Quarter: 2013Q3

REPORT INFORMATION
  Report Type: Spontaneous
  Country: GB (occurrence: GB)
  Receive Date: 20130802
  Receipt Date: 20130802
  Transmission Date: 20140515
  Serious: Yes (Other)
  Sender: FDA-Public Use
  Company Number: GB-JNJFOC-20130715954

PATIENT
  Age: 8 Year
  Sex: Male

DRUGS (6)
  1. INFLIXIMAB, RECOMBINANT [Suspect]
     Indication: PYODERMA GANGRENOSUM
     Route: 042
  2. CYCLOSPORIN [Suspect]
     Indication: PYODERMA GANGRENOSUM
     Route: 065
  3. CYCLOSPORIN [Suspect]
     Indication: PYODERMA GANGRENOSUM
     Route: 065
  4. PREDNISOLONE [Suspect]
     Indication: PYODERMA GANGRENOSUM
     Route: 065
  5. PREDNISOLONE [Suspect]
     Indication: PYODERMA GANGRENOSUM
     Route: 065
  6. PREDNISOLONE [Suspect]
     Indication: PYODERMA GANGRENOSUM
     Route: 065

REACTIONS (4)
  - Pyoderma gangrenosum [Unknown]
  - Splenic lesion [Unknown]
  - Pharyngeal ulceration [Unknown]
  - Off label use [Unknown]
